FAERS Safety Report 16662750 (Version 1)
Quarter: 2019Q3

REPORT INFORMATION
  Report Type: Report from Study
  Country: US (occurrence: US)
  Receive Date: 20190802
  Receipt Date: 20190802
  Transmission Date: 20191004
  Serious: No
  Sender: FDA-Public Use
  Company Number: US-EXELIXIS-CABO-19019185

PATIENT
  Sex: Male
  Weight: 70.74 kg

DRUGS (2)
  1. MELATONIN [Concomitant]
     Active Substance: MELATONIN
  2. CABOMETYX [Suspect]
     Active Substance: CABOZANTINIB S-MALATE
     Indication: RENAL CELL CARCINOMA STAGE IV
     Dosage: 60 MG, QD
     Dates: end: 201902

REACTIONS (3)
  - Vision blurred [Recovered/Resolved]
  - Malignant neoplasm progression [Unknown]
  - Blood urine present [Recovered/Resolved]
